FAERS Safety Report 11888202 (Version 5)
Quarter: 2018Q3

REPORT INFORMATION
  Report Type: Report from Study
  Country: JP (occurrence: JP)
  Receive Date: 20160105
  Receipt Date: 20180920
  Transmission Date: 20181010
  Serious: Yes (Other)
  Sender: FDA-Public Use
  Company Number: JP-ASTELLAS-2010JP003369

PATIENT
  Age: 43 Year
  Sex: Female
  Weight: 61 kg

DRUGS (104)
  1. PREDNISOLONE. [Suspect]
     Active Substance: PREDNISOLONE
     Dosage: 20?5MG, ALTERNATELY/2 DAYS
     Route: 048
     Dates: start: 20081204, end: 20090115
  2. PREDNISOLONE. [Suspect]
     Active Substance: PREDNISOLONE
     Dosage: 17.5?5MG, ALTERNATELY/2 DAYS
     Route: 048
     Dates: start: 20090115, end: 20090521
  3. PREDNISOLONE. [Suspect]
     Active Substance: PREDNISOLONE
     Dosage: 15?5MG, ALTERNATELY/2 DAYS
     Route: 048
     Dates: start: 20090521, end: 20090924
  4. PREDNISOLONE. [Suspect]
     Active Substance: PREDNISOLONE
     Dosage: 20?5MG, ALTERNATELY/2DAYS
     Route: 048
     Dates: start: 20100128, end: 20100421
  5. PREDNISOLONE. [Suspect]
     Active Substance: PREDNISOLONE
     Dosage: 25?5MG, ALTERNATELY/2DAYS
     Route: 048
     Dates: start: 20120802, end: 20121121
  6. PREDNISOLONE. [Suspect]
     Active Substance: PREDNISOLONE
     Route: 048
     Dates: start: 20130919, end: 20140115
  7. PREDNISOLONE. [Suspect]
     Active Substance: PREDNISOLONE
     Route: 048
     Dates: start: 20141120, end: 20150121
  8. INCREMIN                           /00023544/ [Concomitant]
     Indication: PROPHYLAXIS
  9. RESTAMIN                           /00000401/ [Concomitant]
     Active Substance: DIPHENHYDRAMINE
     Indication: ECZEMA
     Dosage: UNK UNK, UNKNOWN FREQ.
     Route: 061
     Dates: start: 20160623
  10. COCARL [Concomitant]
     Active Substance: ACETAMINOPHEN
     Indication: TOOTH EXTRACTION
     Route: 048
     Dates: start: 20111013, end: 20111018
  11. COCARL [Concomitant]
     Active Substance: ACETAMINOPHEN
     Indication: BACK PAIN
     Route: 048
     Dates: start: 20120105, end: 20120115
  12. JUVELA                             /00110502/ [Concomitant]
     Route: 048
     Dates: start: 20140320, end: 20150520
  13. LUTORAL [Concomitant]
     Active Substance: CHLORMADINONE ACETATE
     Indication: OVARIAN FAILURE
     Route: 048
     Dates: start: 20080703, end: 20080712
  14. LUTORAL [Concomitant]
     Active Substance: CHLORMADINONE ACETATE
     Route: 048
     Dates: start: 20090115, end: 20090124
  15. LUTORAL [Concomitant]
     Active Substance: CHLORMADINONE ACETATE
     Route: 048
     Dates: start: 20090630, end: 20090704
  16. PARIET [Concomitant]
     Active Substance: RABEPRAZOLE SODIUM
     Indication: BACK PAIN
     Route: 048
     Dates: end: 20130515
  17. RINDERON VG [Concomitant]
     Active Substance: BETAMETHASONE VALERATE\GENTAMICIN SULFATE
     Indication: RASH
     Dosage: UNK UNK, UNKNOWN FREQ.
     Route: 061
     Dates: start: 20140220, end: 20140319
  18. TACROLIMUS. [Interacting]
     Active Substance: TACROLIMUS
     Route: 048
     Dates: start: 20141120, end: 20170215
  19. LIPITOR [Interacting]
     Active Substance: ATORVASTATIN CALCIUM
     Indication: HYPERLIPIDAEMIA
     Route: 048
     Dates: start: 20130124, end: 20130418
  20. PREDNISOLONE. [Suspect]
     Active Substance: PREDNISOLONE
     Dosage: 5?12.5MG, ALTERNATELY/2DAYS
     Route: 048
     Dates: start: 20101021, end: 20110831
  21. CELLCEPT [Suspect]
     Active Substance: MYCOPHENOLATE MOFETIL\MYCOPHENOLATE MOFETIL HYDROCHLORIDE
     Route: 048
     Dates: start: 20150723, end: 20160330
  22. GASTER [Concomitant]
     Active Substance: FAMOTIDINE
     Indication: PRODUCT USED FOR UNKNOWN INDICATION
     Route: 048
     Dates: end: 20090528
  23. INCREMIN                           /00023544/ [Concomitant]
     Indication: IRON DEFICIENCY ANAEMIA
     Route: 048
     Dates: start: 20110331, end: 20121219
  24. LAC?B [Concomitant]
     Active Substance: BIFIDOBACTERIUM SPP.
     Indication: ENTEROCOLITIS VIRAL
     Route: 048
     Dates: start: 20120227, end: 20120305
  25. LOPEMIN                            /00384302/ [Concomitant]
     Active Substance: LOPERAMIDE HYDROCHLORIDE
     Indication: ENTEROCOLITIS VIRAL
     Route: 048
     Dates: start: 20120227, end: 20120301
  26. PARIET [Concomitant]
     Active Substance: RABEPRAZOLE SODIUM
     Indication: DYSPEPSIA
     Route: 048
     Dates: start: 20130516, end: 20150318
  27. PARIET [Concomitant]
     Active Substance: RABEPRAZOLE SODIUM
     Route: 048
     Dates: start: 20170216
  28. FOSAMAC [Concomitant]
     Active Substance: ALENDRONATE SODIUM
     Indication: PRODUCT USED FOR UNKNOWN INDICATION
     Route: 048
     Dates: start: 20091217, end: 20100128
  29. MEVALOTIN [Concomitant]
     Active Substance: PRAVASTATIN SODIUM
     Indication: HYPERLIPIDAEMIA
     Route: 048
     Dates: start: 20100729, end: 20100909
  30. BREDININ [Concomitant]
     Active Substance: MIZORIBINE
     Route: 048
     Dates: start: 20130711, end: 20130918
  31. JUVELA N [Concomitant]
     Active Substance: TOCOPHERYL NICOTINATE, D-.ALPHA.
     Indication: LUPUS NEPHRITIS
     Route: 048
     Dates: start: 20130321, end: 20130417
  32. LOXONIN [Concomitant]
     Active Substance: LOXOPROFEN SODIUM
     Indication: NASOPHARYNGITIS
     Route: 065
     Dates: start: 20091228, end: 20100103
  33. PREDNISOLONE. [Suspect]
     Active Substance: PREDNISOLONE
     Dosage: 5?15MG, ALTERNATELY/2DAYS
     Route: 048
     Dates: start: 20121122, end: 20130123
  34. PREDNISOLONE. [Suspect]
     Active Substance: PREDNISOLONE
     Dosage: 17.5?5MG, ALTERNATELY/2DAYS
     Route: 048
     Dates: start: 20130124, end: 20130417
  35. PREDNISOLONE. [Suspect]
     Active Substance: PREDNISOLONE
     Route: 048
     Dates: start: 20140116, end: 20140219
  36. PREDNISOLONE. [Suspect]
     Active Substance: PREDNISOLONE
     Route: 048
     Dates: start: 20160623
  37. CELLCEPT [Suspect]
     Active Substance: MYCOPHENOLATE MOFETIL\MYCOPHENOLATE MOFETIL HYDROCHLORIDE
     Route: 048
     Dates: start: 20150319, end: 20150722
  38. EPADEL?S [Concomitant]
     Active Substance: ICOSAPENT ETHYL
     Route: 048
     Dates: start: 20130418
  39. PARIET [Concomitant]
     Active Substance: RABEPRAZOLE SODIUM
     Indication: PROPHYLAXIS
     Dosage: 10?20 MG PER DAY
     Route: 048
     Dates: start: 20090528
  40. PREMARIN [Concomitant]
     Active Substance: ESTROGENS, CONJUGATED
     Indication: OVARIAN FAILURE
     Route: 048
     Dates: start: 20100413, end: 20121031
  41. SELBEX [Concomitant]
     Active Substance: TEPRENONE
     Indication: NASOPHARYNGITIS
     Route: 065
     Dates: start: 20091228, end: 20100103
  42. HIRUDOID                           /00723701/ [Concomitant]
     Active Substance: PENTOSAN POLYSULFATE SODIUM
     Indication: RASH
     Dosage: UNK UNK, UNKNOWN FREQ.
     Route: 061
     Dates: start: 20140116, end: 20140219
  43. TACROLIMUS. [Interacting]
     Active Substance: TACROLIMUS
     Route: 048
     Dates: start: 20170216
  44. PREDNISOLONE. [Suspect]
     Active Substance: PREDNISOLONE
     Route: 048
     Dates: start: 20080807, end: 20081204
  45. PREDNISOLONE. [Suspect]
     Active Substance: PREDNISOLONE
     Dosage: 15?5MG, ALTERNATELY/2 DAYS
     Route: 048
     Dates: start: 20091105, end: 20100128
  46. PREDNISOLONE. [Suspect]
     Active Substance: PREDNISOLONE
     Route: 048
     Dates: start: 20130418, end: 20130612
  47. PREDNISOLONE. [Suspect]
     Active Substance: PREDNISOLONE
     Route: 048
     Dates: start: 20130613, end: 20130710
  48. PREDNISOLONE. [Suspect]
     Active Substance: PREDNISOLONE
     Route: 048
     Dates: start: 20150219, end: 20151216
  49. CELLCEPT [Suspect]
     Active Substance: MYCOPHENOLATE MOFETIL\MYCOPHENOLATE MOFETIL HYDROCHLORIDE
     Route: 048
     Dates: start: 20160331
  50. RESTAMIN                           /00000401/ [Concomitant]
     Active Substance: DIPHENHYDRAMINE
     Indication: PRURITUS
     Dosage: UNK UNK, UNKNOWN FREQ.
     Route: 061
     Dates: start: 20110811, end: 20111005
  51. BIOFERMIN R [Concomitant]
     Active Substance: BACILLUS SUBTILIS\LACTOBACILLUS ACIDOPHILUS\STREPTOCOCCUS FAECAIS
     Indication: DIARRHOEA
     Route: 048
     Dates: start: 20111024, end: 20111027
  52. LAC?B [Concomitant]
     Active Substance: BIFIDOBACTERIUM SPP.
     Indication: DIARRHOEA
     Route: 048
     Dates: start: 20121109, end: 20121112
  53. ONON [Concomitant]
     Active Substance: PRANLUKAST
     Indication: ALLERGIC COUGH
     Route: 048
     Dates: start: 20120621, end: 20120801
  54. EDIROL [Concomitant]
     Active Substance: ELDECALCITOL
     Indication: PROPHYLAXIS
     Dosage: 0.75 MCG, ONCE DAILY
     Route: 048
     Dates: start: 20130124
  55. LUTORAL [Concomitant]
     Active Substance: CHLORMADINONE ACETATE
     Route: 048
     Dates: start: 20100413, end: 20121031
  56. IMURAN [Concomitant]
     Active Substance: AZATHIOPRINE
     Indication: LUPUS NEPHRITIS
     Route: 048
     Dates: start: 20130321, end: 20130417
  57. PREDNISOLONE. [Suspect]
     Active Substance: PREDNISOLONE
     Dosage: 5?20MG, ALTERNATELY/2DAYS
     Route: 048
     Dates: start: 20110901, end: 20120104
  58. PREDNISOLONE. [Suspect]
     Active Substance: PREDNISOLONE
     Route: 048
     Dates: start: 20140703, end: 20140827
  59. PREDNISOLONE. [Suspect]
     Active Substance: PREDNISOLONE
     Route: 048
     Dates: start: 20140828, end: 20140924
  60. PREDNISOLONE. [Suspect]
     Active Substance: PREDNISOLONE
     Route: 048
     Dates: start: 20140925, end: 20141119
  61. FLOMOX [Suspect]
     Active Substance: CEFCAPENE PIVOXIL HYDROCHLORIDE HYDRATE
     Indication: TOOTH EXTRACTION
  62. CELLCEPT [Suspect]
     Active Substance: MYCOPHENOLATE MOFETIL\MYCOPHENOLATE MOFETIL HYDROCHLORIDE
     Indication: LUPUS NEPHRITIS
     Route: 048
     Dates: start: 20140220, end: 20140416
  63. MYSER                              /01249201/ [Concomitant]
     Active Substance: DIFLUPREDNATE
     Dosage: UNK UNK, UNKNOWN FREQ.
     Route: 061
     Dates: start: 20140320, end: 20160220
  64. PROPETO [Concomitant]
     Indication: DRY SKIN
     Dosage: UNK UNK, UNKNOWN FREQ.
     Route: 061
     Dates: start: 20120906, end: 20121018
  65. BAKTAR [Concomitant]
     Active Substance: SULFAMETHOXAZOLE\TRIMETHOPRIM
     Dosage: 2 DF, THRICE PER WEEK
     Route: 048
     Dates: start: 20130321
  66. BREDININ [Concomitant]
     Active Substance: MIZORIBINE
     Route: 048
     Dates: start: 20131017, end: 20140219
  67. ZETIA [Concomitant]
     Active Substance: EZETIMIBE
     Indication: HYPERLIPIDAEMIA
     Route: 048
     Dates: start: 20130711
  68. LOXONIN [Concomitant]
     Active Substance: LOXOPROFEN SODIUM
     Indication: OROPHARYNGEAL PAIN
  69. KINDAVATE [Concomitant]
     Active Substance: CLOBETASONE BUTYRATE
     Indication: RASH
     Dosage: UNK UNK, UNKNOWN FREQ.
     Route: 061
     Dates: start: 20131212, end: 20140115
  70. TACROLIMUS. [Interacting]
     Active Substance: TACROLIMUS
     Route: 048
     Dates: start: 20140925, end: 20141119
  71. PREDNISOLONE. [Suspect]
     Active Substance: PREDNISOLONE
     Dosage: 5?15MG, ALTERNATELY/2DAYS
     Route: 048
     Dates: start: 20120105, end: 20120801
  72. PREDNISOLONE. [Suspect]
     Active Substance: PREDNISOLONE
     Route: 048
     Dates: start: 20130711, end: 20130918
  73. PREDNISOLONE. [Suspect]
     Active Substance: PREDNISOLONE
     Route: 048
     Dates: start: 20140220, end: 20140702
  74. FLOMOX [Suspect]
     Active Substance: CEFCAPENE PIVOXIL HYDROCHLORIDE HYDRATE
     Indication: NASOPHARYNGITIS
     Route: 048
     Dates: start: 20091228, end: 20100101
  75. ZITHROMAC [Suspect]
     Active Substance: AZITHROMYCIN DIHYDRATE
     Indication: TOOTH EXTRACTION
     Route: 048
     Dates: start: 20111013, end: 20111014
  76. BAKTAR [Concomitant]
     Active Substance: SULFAMETHOXAZOLE\TRIMETHOPRIM
     Indication: PROPHYLAXIS
     Dosage: 2 DF, TWICE PER WEEK
     Route: 048
     Dates: end: 20080410
  77. ALFAROL [Concomitant]
     Active Substance: ALFACALCIDOL
     Indication: PROPHYLAXIS
     Dosage: 0.25 MCG, ONCE DAILY
     Route: 048
     Dates: end: 20130123
  78. PERSANTINE [Concomitant]
     Active Substance: DIPYRIDAMOLE
     Indication: LUPUS NEPHRITIS
     Route: 048
     Dates: end: 20121017
  79. PARIET [Concomitant]
     Active Substance: RABEPRAZOLE SODIUM
     Route: 048
     Dates: start: 20150319, end: 20170104
  80. JUVELA N [Concomitant]
     Active Substance: TOCOPHERYL NICOTINATE, D-.ALPHA.
     Indication: RASH
     Route: 048
     Dates: start: 20140320
  81. SELBEX [Concomitant]
     Active Substance: TEPRENONE
     Indication: OROPHARYNGEAL PAIN
  82. TACROLIMUS. [Suspect]
     Active Substance: TACROLIMUS
     Indication: LUPUS NEPHRITIS
     Route: 048
     Dates: start: 20080313, end: 20140924
  83. PREDNISOLONE. [Suspect]
     Active Substance: PREDNISOLONE
     Indication: LUPUS NEPHRITIS
     Route: 048
     Dates: end: 20080807
  84. PREDNISOLONE. [Suspect]
     Active Substance: PREDNISOLONE
     Dosage: 12.5?5MG, ALTERNATELY/2 DAYS
     Route: 048
     Dates: start: 20090924, end: 20091105
  85. FLOMOX [Suspect]
     Active Substance: CEFCAPENE PIVOXIL HYDROCHLORIDE HYDRATE
     Indication: OROPHARYNGEAL PAIN
     Route: 048
     Dates: start: 20111013, end: 20111018
  86. BUSCOPAN [Concomitant]
     Active Substance: BUTYLSCOPOLAMINE BROMIDE
     Indication: ABDOMINAL PAIN
     Route: 048
     Dates: start: 20120802, end: 20120808
  87. EPADEL?S [Concomitant]
     Active Substance: ICOSAPENT ETHYL
     Indication: LUPUS NEPHRITIS
     Route: 048
     Dates: start: 20121122, end: 20130320
  88. JUVELA                             /00110502/ [Concomitant]
     Indication: RASH
     Route: 048
     Dates: end: 20080410
  89. PARIET [Concomitant]
     Active Substance: RABEPRAZOLE SODIUM
     Route: 048
     Dates: start: 20170105, end: 20170215
  90. BREDININ [Concomitant]
     Active Substance: MIZORIBINE
     Indication: LUPUS NEPHRITIS
     Route: 048
     Dates: start: 20130418, end: 20130612
  91. BREDININ [Concomitant]
     Active Substance: MIZORIBINE
     Route: 048
     Dates: start: 20130919, end: 20131016
  92. PREDNISOLONE. [Suspect]
     Active Substance: PREDNISOLONE
     Dosage: 5?17.5MG, ALTERNATELY/2DAYS
     Route: 048
     Dates: start: 20100422, end: 20100616
  93. PREDNISOLONE. [Suspect]
     Active Substance: PREDNISOLONE
     Dosage: 5?15MG, ALTERNATELY/2DAYS
     Route: 048
     Dates: start: 20100617, end: 20101020
  94. PREDNISOLONE. [Suspect]
     Active Substance: PREDNISOLONE
     Route: 048
     Dates: start: 20150122, end: 20150218
  95. PREDNISOLONE. [Suspect]
     Active Substance: PREDNISOLONE
     Route: 048
     Dates: start: 20151217, end: 20160622
  96. CELLCEPT [Suspect]
     Active Substance: MYCOPHENOLATE MOFETIL\MYCOPHENOLATE MOFETIL HYDROCHLORIDE
     Route: 048
     Dates: start: 20140417, end: 20150318
  97. MYSER                              /01249201/ [Concomitant]
     Active Substance: DIFLUPREDNATE
     Indication: RASH
     Dosage: UNK UNK, UNKNOWN FREQ.
     Route: 061
     Dates: start: 20100909, end: 20101021
  98. PL [Concomitant]
     Active Substance: ACETAMINOPHEN\CAFFEINE\PROMETHAZINE\SALICYLAMIDE
     Indication: NASOPHARYNGITIS
     Route: 048
     Dates: start: 20110901, end: 20110908
  99. ISODINE [Concomitant]
     Active Substance: POVIDONE-IODINE
     Indication: PRODUCT USED FOR UNKNOWN INDICATION
     Dosage: UNK UNK, UNKNOWN FREQ.
     Route: 061
     Dates: end: 20090521
  100. LUTORAL [Concomitant]
     Active Substance: CHLORMADINONE ACETATE
     Route: 048
     Dates: start: 20090714, end: 20090728
  101. GLAKAY [Concomitant]
     Active Substance: MENATETRENONE
     Indication: PROPHYLAXIS
     Route: 048
     Dates: start: 20100422
  102. BREDININ [Concomitant]
     Active Substance: MIZORIBINE
     Route: 048
     Dates: start: 20130613, end: 20130710
  103. INDOMETACIN [Concomitant]
     Active Substance: INDOMETHACIN
     Indication: PAIN IN EXTREMITY
     Dosage: UNK UNK, UNKNOWN FREQ.
     Route: 061
     Dates: start: 20130418, end: 20130612
  104. FERROMIA [Concomitant]
     Active Substance: SODIUM FERROUS CITRATE
     Indication: IRON DEFICIENCY ANAEMIA
     Route: 048
     Dates: start: 20110113, end: 20110203

REACTIONS (28)
  - Arthritis [Recovering/Resolving]
  - Back pain [Recovering/Resolving]
  - Prescribed underdose [Unknown]
  - Dental caries [Recovering/Resolving]
  - Allergic cough [Recovered/Resolved]
  - Diarrhoea [Recovering/Resolving]
  - Dyspepsia [Recovering/Resolving]
  - Diarrhoea [Recovering/Resolving]
  - Muscle spasms [Recovering/Resolving]
  - Drug interaction [Unknown]
  - Pruritus [Recovering/Resolving]
  - Eczema [Recovering/Resolving]
  - Iron deficiency anaemia [Recovered/Resolved]
  - Oropharyngeal pain [Recovering/Resolving]
  - Nasopharyngitis [Recovering/Resolving]
  - Eczema [Recovering/Resolving]
  - Back pain [Recovering/Resolving]
  - Prescribed overdose [Unknown]
  - Tibia fracture [Recovering/Resolving]
  - Dry skin [Recovering/Resolving]
  - Hyperlipidaemia [Not Recovered/Not Resolved]
  - Rash [Recovering/Resolving]
  - Enterocolitis viral [Recovering/Resolving]
  - Nasopharyngitis [Recovering/Resolving]
  - Abdominal pain [Recovered/Resolved]
  - Pain in extremity [Recovering/Resolving]
  - Aphthous ulcer [Recovering/Resolving]
  - Dyspepsia [Recovering/Resolving]

NARRATIVE: CASE EVENT DATE: 20090528
